FAERS Safety Report 7363720-5 (Version None)
Quarter: 2011Q1

REPORT INFORMATION
  Report Type: 
  Country: None (occurrence: None)
  Receive Date: 20110321
  Receipt Date: 20110315
  Transmission Date: 20110831
  Serious: Yes (Death)
  Sender: FDA-Public Use
  Company Number: US-CELGENEUS-163-21880-11031869

PATIENT
  Sex: Female

DRUGS (17)
  1. REVLIMID [Suspect]
     Indication: MULTIPLE MYELOMA
     Dosage: 25 MILLIGRAM
     Route: 048
     Dates: start: 20090801, end: 20100101
  2. CALCIUM [Concomitant]
     Route: 065
  3. GABAPENTIN [Concomitant]
     Route: 065
  4. CYCLOPHOSPHAMIDE [Concomitant]
     Route: 065
  5. DARVON [Concomitant]
     Route: 065
  6. MULTI-VITAMINS [Concomitant]
     Route: 065
  7. REVLIMID [Suspect]
     Dosage: 10 MILLIGRAM
     Route: 048
     Dates: start: 20100701, end: 20101201
  8. IMODIUM [Concomitant]
     Route: 065
  9. OXYCODONE [Concomitant]
     Route: 065
  10. ALLOPURINOL [Concomitant]
     Route: 065
  11. MAGNESIUM OXIDE [Concomitant]
     Route: 065
  12. AMBIEN [Concomitant]
     Route: 065
  13. ASPIRIN [Concomitant]
     Route: 065
  14. CLARITIN [Concomitant]
     Route: 065
  15. DARVOCET [Concomitant]
     Route: 065
  16. DEXAMETHASONE [Concomitant]
     Route: 065
  17. VALTREX [Concomitant]
     Route: 065

REACTIONS (1)
  - DEATH [None]
